FAERS Safety Report 7277763-3 (Version None)
Quarter: 2011Q1

REPORT INFORMATION
  Report Type: 
  Country: None (occurrence: None)
  Receive Date: 20110207
  Receipt Date: 20100219
  Transmission Date: 20110831
  Serious: No
  Sender: FDA-Public Use
  Company Number: A0845475A

PATIENT
  Age: 70 Year
  Sex: Female

DRUGS (4)
  1. MULTIVITAMIN [Concomitant]
  2. MINERAL TAB [Concomitant]
  3. OLUX E FOAM (EMULSION AEROSOL FOAM) [Suspect]
     Dosage: 1APP AS REQUIRED
     Route: 061
     Dates: start: 20100212, end: 20100213
  4. SYNTHROID [Concomitant]

REACTIONS (2)
  - RASH [None]
  - RASH MACULAR [None]
